FAERS Safety Report 9699554 (Version 2)
Quarter: 2013Q4

REPORT INFORMATION
  Report Type: Spontaneous
  Country: SI (occurrence: SI)
  Receive Date: 20131120
  Receipt Date: 20131230
  Transmission Date: 20140711
  Serious: Yes (Other)
  Sender: FDA-Public Use
  Company Number: SI-MYLANLABS-2013S1025526

PATIENT
  Age: 80 Year
  Sex: Female

DRUGS (8)
  1. CLOZAPINE [Suspect]
     Indication: DEMENTIA
     Dosage: 12.5 MG DAILY
     Route: 065
  2. CLOZAPINE [Suspect]
     Indication: PSYCHOTIC BEHAVIOUR
     Dosage: 12.5 MG DAILY
     Route: 065
  3. CLOZAPINE [Suspect]
     Indication: DEMENTIA
     Dosage: 25 MG DAILY
     Route: 065
  4. CLOZAPINE [Suspect]
     Indication: PSYCHOTIC BEHAVIOUR
     Dosage: 25 MG DAILY
     Route: 065
  5. MEMANTINE [Concomitant]
     Indication: DEMENTIA
     Route: 065
  6. ZOLPIDEM [Concomitant]
     Dosage: UNCLEAR IF PATIENT TAKING AT TIME OF ADR ONSET.
     Route: 065
  7. RAMIPRIL [Concomitant]
     Dosage: UNCLEAR IF PATIENT TAKING AT TIME OF ADR ONSET.
     Route: 065
  8. LORAZEPAM [Concomitant]
     Dosage: UNCLEAR IF PATIENT TAKING AT TIME OF ADR ONSET.

REACTIONS (2)
  - C-reactive protein increased [Recovering/Resolving]
  - Pyrexia [Recovered/Resolved]
